FAERS Safety Report 11068256 (Version 1)
Quarter: 2015Q2

REPORT INFORMATION
  Report Type: Spontaneous
  Country: US (occurrence: None)
  Receive Date: 20150424
  Receipt Date: 20150424
  Transmission Date: 20150821
  Serious: No
  Sender: FDA-Public Use
  Company Number: None

PATIENT
  Sex: Male
  Weight: 87.54 kg

DRUGS (1)
  1. ANDRODERM [Suspect]
     Active Substance: TESTOSTERONE
     Dosage: 4MG PER DAY  1 PATCH DAILY  TRANSDERMAL SYSTEM
     Route: 062
     Dates: start: 20150420

REACTIONS (2)
  - Application site scar [None]
  - Application site burn [None]
